FAERS Safety Report 6831045-X (Version None)
Quarter: 2010Q3

REPORT INFORMATION
  Report Type: 
  Country: None (occurrence: None)
  Receive Date: 20100712
  Receipt Date: 20100702
  Transmission Date: 20110219
  Serious: Yes (Other)
  Sender: FDA-Public Use
  Company Number: US-ASTRAZENECA-2010SE31542

PATIENT
  Sex: Female

DRUGS (1)
  1. PRILOSEC OTC [Suspect]
     Indication: GASTROOESOPHAGEAL REFLUX DISEASE
     Route: 048
     Dates: end: 20100630

REACTIONS (3)
  - DYSPNOEA [None]
  - HYPERHIDROSIS [None]
  - OEDEMA PERIPHERAL [None]
